FAERS Safety Report 8516532-0 (Version None)
Quarter: 2012Q3

REPORT INFORMATION
  Report Type: 
  Country: None (occurrence: None)
  Receive Date: 20120711
  Receipt Date: 20120711
  Transmission Date: 20120928
  Serious: Yes (Congenital Anomaly)
  Sender: FDA-Public Use
  Company Number: None

PATIENT
  Age: 32 Year
  Sex: Female
  Weight: 80.7403 kg

DRUGS (1)
  1. XANAX [Suspect]
     Dates: start: 20050311, end: 20110615

REACTIONS (1)
  - MATERNAL EXPOSURE DURING PREGNANCY [None]
